FAERS Safety Report 6883904-X (Version None)
Quarter: 2010Q3

REPORT INFORMATION
  Report Type: 
  Country: None (occurrence: None)
  Receive Date: 20100708
  Receipt Date: 20100222
  Transmission Date: 20110219
  Serious: Yes (Other)
  Sender: FDA-Public Use
  Company Number: 2010024045

PATIENT
  Age: 53 Year
  Sex: Female
  Weight: 72.6 kg

DRUGS (8)
  1. CHANTIX [Suspect]
     Indication: SMOKING CESSATION THERAPY
     Dosage: FREGUENCY: 2X/DAY,, ORAL
     Route: 048
     Dates: start: 20100201, end: 20100221
  2. PROZAC [Concomitant]
  3. XANAX [Concomitant]
  4. ASPIRIN [Concomitant]
  5. METHADONE HCL [Concomitant]
  6. ATENOLOL [Concomitant]
  7. LISINOPRIL AND HYDROCHLOROTHIAZIDE [Concomitant]
  8. DILTIAZEM [Concomitant]

REACTIONS (3)
  - ANXIETY [None]
  - HALLUCINATION, AUDITORY [None]
  - TREMOR [None]
